FAERS Safety Report 16429941 (Version 2)
Quarter: 2019Q4

REPORT INFORMATION
  Report Type: Spontaneous
  Country: US (occurrence: US)
  Receive Date: 20190614
  Receipt Date: 20191212
  Transmission Date: 20200122
  Serious: Yes (Other)
  Sender: FDA-Public Use
  Company Number: US-SUN PHARMACEUTICAL INDUSTRIES LTD-2019R1-210637

PATIENT
  Age: 3 Year
  Sex: Male

DRUGS (3)
  1. TEMOZOLOMIDE. [Suspect]
     Active Substance: TEMOZOLOMIDE
     Indication: NEUROBLASTOMA
     Dosage: UNK
     Route: 065
  2. CARBOPLATIN. [Suspect]
     Active Substance: CARBOPLATIN
     Indication: NEUROBLASTOMA
     Dosage: UNK
     Route: 065
  3. IRINOTECAN [Suspect]
     Active Substance: IRINOTECAN
     Indication: NEUROBLASTOMA
     Dosage: UNK
     Route: 065

REACTIONS (1)
  - Immune thrombocytopenic purpura [Recovered/Resolved]
